FAERS Safety Report 25784670 (Version 1)
Quarter: 2025Q3

REPORT INFORMATION
  Report Type: Spontaneous
  Country: CN (occurrence: CN)
  Receive Date: 20250910
  Receipt Date: 20250910
  Transmission Date: 20251021
  Serious: Yes (Hospitalization, Other)
  Sender: BAXTER
  Company Number: None

PATIENT
  Age: 11 Year
  Sex: Male
  Weight: 30 kg

DRUGS (10)
  1. IFOSFAMIDE [Suspect]
     Active Substance: IFOSFAMIDE
     Indication: Non-Hodgkin^s lymphoma stage IV
     Dosage: 0.85 G, BID (800 MG/(M2.TIMES) (Q12H D2-4 FOR A TOTAL OF 5 TIMES)
     Route: 042
     Dates: start: 20250709, end: 20250711
  2. SODIUM CHLORIDE [Suspect]
     Active Substance: SODIUM CHLORIDE
     Route: 042
     Dates: start: 20250708
  3. DAUNORUBICIN HYDROCHLORIDE [Suspect]
     Active Substance: DAUNORUBICIN HYDROCHLORIDE
     Indication: Non-Hodgkin^s lymphoma stage IV
     Dosage: 31.8 MG, QD (30 MG/((M2.D) INTRAVENOUS DRIP D5)
     Route: 042
     Dates: start: 20250712, end: 20250712
  4. METHOTREXATE [Suspect]
     Active Substance: METHOTREXATE
     Indication: Non-Hodgkin^s lymphoma stage IV
     Dosage: 4.8 G, QD (5 G/M2 INTRAVENOUS DRIP D1)
     Route: 042
     Dates: start: 20250708, end: 20250708
  5. DEXAMETHASONE [Concomitant]
     Active Substance: DEXAMETHASONE
     Indication: Leukaemia
     Route: 042
     Dates: start: 20250708
  6. DEXAMETHASONE [Concomitant]
     Active Substance: DEXAMETHASONE
     Indication: Prophylaxis
  7. VINCRISTINE [Concomitant]
     Active Substance: VINCRISTINE
     Route: 042
     Dates: start: 20250708
  8. PEGASPARGASE [Concomitant]
     Active Substance: PEGASPARGASE
     Route: 030
     Dates: start: 20250713
  9. CYTARABINE [Concomitant]
     Active Substance: CYTARABINE
     Indication: Leukaemia
     Route: 042
     Dates: start: 20250708
  10. CYTARABINE [Concomitant]
     Active Substance: CYTARABINE
     Indication: Prophylaxis

REACTIONS (10)
  - Myelosuppression [Recovering/Resolving]
  - Granulocytopenia [Recovering/Resolving]
  - Conjunctival pallor [Unknown]
  - Pallor [Unknown]
  - Upper respiratory tract infection [Unknown]
  - Cough [Recovering/Resolving]
  - Productive cough [Unknown]
  - Breath sounds abnormal [Unknown]
  - Tonsillar hypertrophy [Unknown]
  - Pyrexia [Unknown]

NARRATIVE: CASE EVENT DATE: 20250716
